FAERS Safety Report 16836118 (Version 1)
Quarter: 2019Q3

REPORT INFORMATION
  Report Type: Report from Study
  Country: None (occurrence: BR)
  Receive Date: 20190921
  Receipt Date: 20190921
  Transmission Date: 20191005
  Serious: Yes (Hospitalization)
  Sender: FDA-Public Use
  Company Number: BR-ABBVIE-19K-020-2929916-00

PATIENT
  Age: 10 Month
  Sex: Male

DRUGS (1)
  1. SYNAGIS [Suspect]
     Active Substance: PALIVIZUMAB
     Indication: HEART DISEASE CONGENITAL
     Route: 065
     Dates: start: 20180724

REACTIONS (2)
  - Oxygen saturation decreased [Recovered/Resolved]
  - Bronchiolitis [Recovered/Resolved]

NARRATIVE: CASE EVENT DATE: 201904
